FAERS Safety Report 10016767 (Version 2)
Quarter: 2014Q2

REPORT INFORMATION
  Report Type: Report from Study
  Country: US (occurrence: US)
  Receive Date: 20140318
  Receipt Date: 20140414
  Transmission Date: 20141212
  Serious: Yes (Other)
  Sender: FDA-Public Use
  Company Number: PHEH2014US005249

PATIENT
  Sex: Female

DRUGS (1)
  1. GILENYA [Suspect]
     Indication: MULTIPLE SCLEROSIS
     Dosage: 0.5 MG, QD
     Route: 048
     Dates: start: 201301, end: 201303

REACTIONS (6)
  - Glaucoma [Unknown]
  - Dysstasia [Unknown]
  - Blood test abnormal [Unknown]
  - General physical health deterioration [Unknown]
  - White blood cell count decreased [Unknown]
  - Drug ineffective [Unknown]
